FAERS Safety Report 24550308 (Version 1)
Quarter: 2024Q4

REPORT INFORMATION
  Report Type: Spontaneous
  Country: US (occurrence: US)
  Receive Date: 20241025
  Receipt Date: 20241025
  Transmission Date: 20250115
  Serious: No
  Sender: SUNOVION
  Company Number: US-SUMITOMO PHARMA SWITZERLAND GMBH-2024SPA004145

PATIENT

DRUGS (2)
  1. GEMTESA [Suspect]
     Active Substance: VIBEGRON
     Dosage: UNK
     Route: 048
     Dates: start: 202409
  2. GEMTESA [Suspect]
     Active Substance: VIBEGRON
     Dosage: HALF PILL
     Route: 048

REACTIONS (4)
  - Oropharyngeal pain [Recovering/Resolving]
  - Electric shock sensation [Recovering/Resolving]
  - Pruritus [Recovering/Resolving]
  - Underdose [Unknown]
